FAERS Safety Report 25202386 (Version 1)
Quarter: 2025Q2

REPORT INFORMATION
  Report Type: Spontaneous
  Country: DK (occurrence: DK)
  Receive Date: 20250416
  Receipt Date: 20250416
  Transmission Date: 20250717
  Serious: Yes (Death, Hospitalization, Other)
  Sender: DAIICHI
  Company Number: None

PATIENT
  Age: 56 Year
  Sex: Female

DRUGS (2)
  1. ENHERTU [Suspect]
     Active Substance: FAM-TRASTUZUMAB DERUXTECAN-NXKI
     Indication: Breast cancer metastatic
     Dosage: 394.2 MG, ONCE EVERY 3 WK
     Route: 042
     Dates: start: 20250117, end: 20250117
  2. ENHERTU [Suspect]
     Active Substance: FAM-TRASTUZUMAB DERUXTECAN-NXKI
     Dosage: 394.2 MG, ONCE EVERY 3 WK
     Route: 042
     Dates: start: 20250206, end: 20250206

REACTIONS (4)
  - Acute interstitial pneumonitis [Fatal]
  - Acute respiratory failure [Fatal]
  - Hepatic failure [Unknown]
  - Dyspnoea [Unknown]

NARRATIVE: CASE EVENT DATE: 20250101
